FAERS Safety Report 6486818-2 (Version None)
Quarter: 2009Q4

REPORT INFORMATION
  Report Type: 
  Country: None (occurrence: None)
  Receive Date: 20091210
  Receipt Date: 20091208
  Transmission Date: 20100525
  Serious: Yes (Death, Hospitalization, Other)
  Sender: FDA-Public Use
  Company Number: PHEH2009US09503

PATIENT
  Sex: Male
  Weight: 82.4 kg

DRUGS (6)
  1. GLEEVEC [Suspect]
     Indication: CHRONIC MYELOID LEUKAEMIA
     Dosage: 300 MG, QD
     Route: 048
     Dates: start: 20010901
  2. AMBIEN [Concomitant]
  3. AVALIDE [Concomitant]
  4. LEVOXYL [Concomitant]
  5. PROSCAR [Concomitant]
  6. QUININE [Concomitant]

REACTIONS (8)
  - ASTHENIA [None]
  - BLAST CELL COUNT INCREASED [None]
  - DYSPNOEA [None]
  - HAEMOGLOBIN DECREASED [None]
  - LUNG DISORDER [None]
  - MULTI-ORGAN FAILURE [None]
  - RESPIRATORY FAILURE [None]
  - WHITE BLOOD CELL COUNT INCREASED [None]
